FAERS Safety Report 7542569-4 (Version None)
Quarter: 2011Q2

REPORT INFORMATION
  Report Type: 
  Country: None (occurrence: None)
  Receive Date: 20110613
  Receipt Date: 20110603
  Transmission Date: 20111010
  Serious: Yes (Hospitalization)
  Sender: FDA-Public Use
  Company Number: US-ASTRAZENECA-2011SE32302

PATIENT
  Age: 75 Year
  Sex: Female

DRUGS (3)
  1. PLAVIX [Concomitant]
  2. CRESTOR [Suspect]
     Route: 048
     Dates: start: 20050101
  3. ASPIRIN [Concomitant]
     Dosage: HALF TABLET

REACTIONS (3)
  - LUNG OPERATION [None]
  - LUNG NEOPLASM MALIGNANT [None]
  - GASTROINTESTINAL ULCER HAEMORRHAGE [None]
